FAERS Safety Report 13850174 (Version 1)
Quarter: 2017Q3

REPORT INFORMATION
  Report Type: Spontaneous
  Country: NI (occurrence: NI)
  Receive Date: 20170809
  Receipt Date: 20170809
  Transmission Date: 20171127
  Serious: Yes (Other)
  Sender: FDA-Public Use
  Company Number: NI-EMD SERONO-8174816

PATIENT
  Age: 32 Year
  Sex: Female

DRUGS (5)
  1. CETROTIDE [Suspect]
     Active Substance: CETRORELIX ACETATE
     Indication: ASSISTED FERTILISATION
     Dosage: FIRST OCCASION
  2. CETROTIDE [Suspect]
     Active Substance: CETRORELIX ACETATE
     Dosage: SECOND OCCASION
     Dates: start: 201705
  3. LETROZOLE. [Suspect]
     Active Substance: LETROZOLE
     Indication: ASSISTED FERTILISATION
  4. CETROTIDE [Suspect]
     Active Substance: CETRORELIX ACETATE
     Dosage: THIRD OCCASION
  5. GONAL-F [Suspect]
     Active Substance: FOLLITROPIN
     Indication: ASSISTED FERTILISATION

REACTIONS (2)
  - Rash [Unknown]
  - Biochemical pregnancy [Recovered/Resolved]

NARRATIVE: CASE EVENT DATE: 201705
